FAERS Safety Report 22010510 (Version 3)
Quarter: 2024Q1

REPORT INFORMATION
  Report Type: Spontaneous
  Country: GB (occurrence: None)
  Receive Date: 20230220
  Receipt Date: 20240101
  Transmission Date: 20240410
  Serious: Yes (Other)
  Sender: FDA-Public Use
  Company Number: GB-ROCHE-3080124

PATIENT
  Age: 77 Year
  Sex: Female

DRUGS (6)
  1. TOCILIZUMAB [Suspect]
     Active Substance: TOCILIZUMAB
     Indication: Giant cell arteritis
     Route: 058
     Dates: start: 20220418, end: 20230306
  2. TOCILIZUMAB [Suspect]
     Active Substance: TOCILIZUMAB
     Indication: Rheumatoid arthritis
  3. INSULIN NOS [Concomitant]
     Active Substance: INSULIN NOS
  4. CARVEDILOL [Concomitant]
     Active Substance: CARVEDILOL
  5. ENTRESTO [Concomitant]
     Active Substance: SACUBITRIL\VALSARTAN
  6. FUROSEMIDE [Concomitant]
     Active Substance: FUROSEMIDE

REACTIONS (6)
  - Vision blurred [Unknown]
  - Dyspnoea [Unknown]
  - Pain in extremity [Unknown]
  - Diabetes mellitus [Unknown]
  - Product dose omission issue [Unknown]
  - Arthropathy [Unknown]
